FAERS Safety Report 8437183-2 (Version None)
Quarter: 2012Q2

REPORT INFORMATION
  Report Type: 
  Country: None (occurrence: None)
  Receive Date: 20120614
  Receipt Date: 20120308
  Transmission Date: 20120825
  Serious: No
  Sender: FDA-Public Use
  Company Number: US-AMGEN-USASP2011028881

PATIENT
  Age: 60 Year
  Sex: Female
  Weight: 61.5 kg

DRUGS (7)
  1. XGEVA [Suspect]
     Indication: METASTASES TO BONE
     Dosage: 120 MG, Q4WK
     Dates: start: 20110330
  2. CALCIUM + VITAMIN D [Concomitant]
     Dosage: UNK
  3. LISINOPRIL [Suspect]
     Dosage: UNK
  4. LOVAZA [Concomitant]
     Dosage: UNK
  5. OXYCONTIN [Concomitant]
     Dosage: UNK
  6. OMEPRAZOLE [Concomitant]
     Dosage: UNK
  7. FASLODEX [Concomitant]
     Dosage: UNK
     Dates: start: 20110127

REACTIONS (5)
  - NEUTROPENIA [None]
  - VIRAL INFECTION [None]
  - WHITE BLOOD CELL COUNT DECREASED [None]
  - PYREXIA [None]
  - NASOPHARYNGITIS [None]
